FAERS Safety Report 23256733 (Version 3)
Quarter: 2023Q4

REPORT INFORMATION
  Report Type: Spontaneous
  Country: US (occurrence: US)
  Receive Date: 20231204
  Receipt Date: 20231227
  Transmission Date: 20240110
  Serious: Yes (Other)
  Sender: FDA-Public Use
  Company Number: US-002147023-NVSC2023US257358

PATIENT
  Age: 69 Year
  Sex: Male
  Weight: 89.8 kg

DRUGS (1)
  1. PLUVICTO [Suspect]
     Active Substance: LUTETIUM LU-177 VIPIVOTIDE TETRAXETAN
     Indication: Prostate cancer
     Dosage: 200 MCI, Q4W
     Route: 042
     Dates: start: 20230912, end: 20231024

REACTIONS (3)
  - Psoriatic arthropathy [Unknown]
  - Prostate cancer [Unknown]
  - Ill-defined disorder [Unknown]

NARRATIVE: CASE EVENT DATE: 20231129
